FAERS Safety Report 8551081-5 (Version None)
Quarter: 2012Q3

REPORT INFORMATION
  Report Type: 
  Country: None (occurrence: None)
  Receive Date: 20120730
  Receipt Date: 20120720
  Transmission Date: 20120928
  Serious: Yes (Hospitalization, Other)
  Sender: FDA-Public Use
  Company Number: JP-VERTEX PHARMACEUTICALS INC.-AE-2012-010912

PATIENT
  Age: 65 Year
  Sex: Male

DRUGS (6)
  1. VOLTAREN [Concomitant]
     Route: 054
     Dates: start: 20120605
  2. ALLEGRA [Concomitant]
     Route: 048
     Dates: start: 20120608, end: 20120623
  3. PEGINTERFERON ALFA-2B [Concomitant]
     Indication: HEPATITIS C
     Route: 058
     Dates: start: 20120605, end: 20120605
  4. RIBAVIRIN [Concomitant]
     Indication: HEPATITIS C
     Route: 048
     Dates: start: 20120605, end: 20120608
  5. DIFLAL CREAM [Concomitant]
     Route: 061
     Dates: start: 20120611, end: 20120623
  6. TELAVIC (TELAPREVIR) [Suspect]
     Indication: HEPATITIS C
     Route: 048
     Dates: start: 20120605, end: 20120608

REACTIONS (2)
  - RENAL DISORDER [None]
  - HYPERURICAEMIA [None]
